FAERS Safety Report 8252813-6 (Version None)
Quarter: 2012Q2

REPORT INFORMATION
  Report Type: 
  Country: None (occurrence: None)
  Receive Date: 20120402
  Receipt Date: 20120226
  Transmission Date: 20120825
  Serious: No
  Sender: FDA-Public Use
  Company Number: US-ABBOTT-12P-163-0909241-00

PATIENT
  Age: 64 Year
  Sex: Male
  Weight: 106.69 kg

DRUGS (8)
  1. ANDROGEL [Suspect]
     Indication: BLOOD TESTOSTERONE DECREASED
     Dosage: 5 PUMPS DAILY
     Route: 061
  2. RAMIPRIL [Concomitant]
     Indication: HYPERTENSION
  3. FLOMAX [Concomitant]
     Indication: PROSTATIC DISORDER
  4. CELEBREX [Concomitant]
     Indication: PRODUCT USED FOR UNKNOWN INDICATION
  5. PAXIL [Concomitant]
     Indication: NEUROPATHY PERIPHERAL
  6. PREDNISONE TAB [Concomitant]
     Indication: PRODUCT USED FOR UNKNOWN INDICATION
  7. PLAQUENIL [Concomitant]
     Indication: RHEUMATOID ARTHRITIS
  8. LYRICA [Concomitant]
     Indication: NEUROPATHY PERIPHERAL

REACTIONS (2)
  - ASTHENIA [None]
  - DRUG DOSE OMISSION [None]
